FAERS Safety Report 12612457 (Version 1)
Quarter: 2016Q3

REPORT INFORMATION
  Report Type: Spontaneous
  Country: US (occurrence: US)
  Receive Date: 20160801
  Receipt Date: 20160801
  Transmission Date: 20161109
  Serious: No
  Sender: FDA-Public Use
  Company Number: US-PRINSTON PHARMACEUTICAL INC.-2016PRN00011

PATIENT
  Age: 91 Year
  Sex: Female
  Weight: 60.77 kg

DRUGS (4)
  1. UNSPECIFIED HEART MEDICATION [Concomitant]
     Active Substance: UNSPECIFIED INGREDIENT
  2. UNSPECIFIED BLOOD THINNER [Concomitant]
     Active Substance: UNSPECIFIED INGREDIENT
  3. UNSPECIFIED ANTIDEPRESSANT [Concomitant]
  4. DONEPEZIL HYDROCHLORIDE. [Suspect]
     Active Substance: DONEPEZIL HYDROCHLORIDE
     Indication: DEMENTIA ALZHEIMER^S TYPE
     Dosage: 5 MG, 1X/DAY
     Route: 048
     Dates: start: 20151228, end: 20160118

REACTIONS (1)
  - Abnormal dreams [Recovered/Resolved]

NARRATIVE: CASE EVENT DATE: 20151230
